FAERS Safety Report 13072690 (Version 2)
Quarter: 2018Q1

REPORT INFORMATION
  Report Type: Spontaneous
  Country: US (occurrence: US)
  Receive Date: 20161229
  Receipt Date: 20180115
  Transmission Date: 20180508
  Serious: Yes (Other)
  Sender: FDA-Public Use
  Company Number: US-SA-2016SA197695

PATIENT
  Sex: Female

DRUGS (1)
  1. TAXOTERE [Suspect]
     Active Substance: DOCETAXEL
     Indication: BREAST CANCER FEMALE
     Route: 051
     Dates: start: 20130614, end: 20130614

REACTIONS (6)
  - Anxiety [Unknown]
  - Pain [Unknown]
  - Impaired work ability [Unknown]
  - Alopecia [Unknown]
  - Emotional distress [Unknown]
  - Impaired quality of life [Unknown]
